FAERS Safety Report 4692466-7 (Version None)
Quarter: 2005Q2

REPORT INFORMATION
  Report Type: 
  Country: None (occurrence: None)
  Receive Date: 20050613
  Receipt Date: 20050509
  Transmission Date: 20051028
  Serious: Yes (Hospitalization)
  Sender: FDA-Public Use
  Company Number: 2005-01013

PATIENT
  Age: 54 Year
  Sex: Male
  Weight: 86.2 kg

DRUGS (2)
  1. VELCADE [Suspect]
     Indication: MULTIPLE MYELOMA
     Dosage: 1.30 MG/M2, 2/WEEK, INTRAVENOUS
     Route: 042
     Dates: start: 20050221, end: 20050414
  2. SCIO-469 (SCIO-469) CAPSULE [Suspect]
     Indication: MULTIPLE MYELOMA
     Dosage: 60.00 MG, TID, ORAL
     Route: 048
     Dates: start: 20050110, end: 20050415

REACTIONS (3)
  - CHILLS [None]
  - DIZZINESS [None]
  - KLEBSIELLA BACTERAEMIA [None]
